FAERS Safety Report 22333307 (Version 6)
Quarter: 2023Q4

REPORT INFORMATION
  Report Type: Other
  Country: US (occurrence: US)
  Receive Date: 20230517
  Receipt Date: 20231118
  Transmission Date: 20240109
  Serious: No
  Sender: FDA-Public Use
  Company Number: US-TRAVERE-2023TVT00129

PATIENT
  Age: 66 Year
  Sex: Male

DRUGS (2)
  1. FILSPARI [Suspect]
     Active Substance: SPARSENTAN
     Indication: IgA nephropathy
     Route: 048
     Dates: start: 20230418
  2. FILSPARI [Suspect]
     Active Substance: SPARSENTAN
     Indication: Proteinuria
     Dates: start: 202304

REACTIONS (8)
  - Hypersensitivity [Unknown]
  - Heart rate decreased [Unknown]
  - Asthenia [Unknown]
  - Headache [Unknown]
  - Dry skin [None]
  - Skin hyperpigmentation [Unknown]
  - Fatigue [Unknown]
  - Insomnia [Unknown]
